FAERS Safety Report 5405471-X (Version None)
Quarter: 2007Q3

REPORT INFORMATION
  Report Type: 
  Country: None (occurrence: None)
  Receive Date: 20070803
  Receipt Date: 20070724
  Transmission Date: 20080115
  Serious: Yes (Other)
  Sender: FDA-Public Use
  Company Number: FR-PFIZER INC-2007050409

PATIENT
  Sex: Male
  Weight: 80 kg

DRUGS (1)
  1. SUTENT [Suspect]
     Indication: RENAL CELL CARCINOMA STAGE UNSPECIFIED

REACTIONS (7)
  - CONSTIPATION [None]
  - DIARRHOEA [None]
  - EXCORIATION [None]
  - FATIGUE [None]
  - GINGIVAL EROSION [None]
  - GINGIVITIS [None]
  - HYPOTHYROIDISM [None]
